FAERS Safety Report 16850693 (Version 1)
Quarter: 2019Q3

REPORT INFORMATION
  Report Type: Spontaneous
  Country: US (occurrence: US)
  Receive Date: 20190925
  Receipt Date: 20190925
  Transmission Date: 20191005
  Serious: No
  Sender: FDA-Public Use
  Company Number: US-THERAPEUTICSMD-2019TMD02696

PATIENT
  Age: 67 Year
  Sex: Female
  Weight: 47.62 kg

DRUGS (6)
  1. IMVEXXY [Suspect]
     Active Substance: ESTRADIOL
     Indication: DYSPAREUNIA
     Dosage: 10 ?G, 1X/DAY
     Route: 067
     Dates: start: 20190814
  2. ZOLPIDEM [Concomitant]
     Active Substance: ZOLPIDEM TARTRATE
     Dosage: UNK, 1X/DAY AT NIGHT
  3. GABAPENTIN. [Concomitant]
     Active Substance: GABAPENTIN
     Dosage: 30 MG, 2X/DAY
  4. DIAZEPAM. [Concomitant]
     Active Substance: DIAZEPAM
     Dosage: UNK, AS NEEDED
  5. DULOXETINE. [Concomitant]
     Active Substance: DULOXETINE
     Dosage: 60 MG, 1X/DAY
  6. REXULTI [Concomitant]
     Active Substance: BREXPIPRAZOLE
     Dosage: UNK, 1X/DAY

REACTIONS (2)
  - Poor quality sleep [Recovered/Resolved]
  - Product residue present [Recovered/Resolved]

NARRATIVE: CASE EVENT DATE: 20190814
